FAERS Safety Report 25272807 (Version 1)
Quarter: 2025Q2

REPORT INFORMATION
  Report Type: Spontaneous
  Country: NL (occurrence: NL)
  Receive Date: 20250506
  Receipt Date: 20250506
  Transmission Date: 20250716
  Serious: Yes (Life-Threatening)
  Sender: BOEHRINGER INGELHEIM
  Company Number: None

PATIENT
  Age: 17 Year
  Sex: Female
  Weight: 40.8 kg

DRUGS (10)
  1. ATROVENT [Suspect]
     Active Substance: IPRATROPIUM BROMIDE
     Indication: Dyspnoea
     Dates: start: 20250428, end: 20250429
  2. ATROVENT [Suspect]
     Active Substance: IPRATROPIUM BROMIDE
     Indication: Bronchitis
  3. PARACETAMOL TABLET  500MG / LIVSANE PARACETAMOL TABLET 500MG [Concomitant]
     Indication: Product used for unknown indication
  4. Ijzer [Concomitant]
     Indication: Product used for unknown indication
  5. LEVETIRACETAM DRANK 100MG/ML / KEPPRA OPLOSSING VOOR ORAAL GEBRUIK [Concomitant]
     Indication: Product used for unknown indication
  6. TOPIRAMAAT TABLET OMHULD  25MG / TOPAMAX TABLET OMHULD  25MG [Concomitant]
     Indication: Product used for unknown indication
  7. COTRIMOXAZOL  48 SUSP ORAAL 8/40MG/ML / Brand name not specified [Concomitant]
     Indication: Product used for unknown indication
  8. ESOMEPRAZOL GRAN VOOR SUSP. 10MG / NEXIUM GRANULAAT MSR V SUSP IN SACH [Concomitant]
     Indication: Product used for unknown indication
  9. GLYCOPYRRONIUM TABLET 1MG / Brand name not specified [Concomitant]
     Indication: Product used for unknown indication
  10. ACETYLCYSTEINE VERNEVELVLST 100MG/ML / FLUIMUCIL INHVLST 100MG/ML AMPU [Concomitant]
     Indication: Product used for unknown indication

REACTIONS (4)
  - Swelling face [Recovering/Resolving]
  - Dyspnoea [Recovering/Resolving]
  - Oxygen saturation decreased [Recovering/Resolving]
  - Body temperature increased [Recovering/Resolving]
